FAERS Safety Report 5731118-9 (Version None)
Quarter: 2008Q2

REPORT INFORMATION
  Report Type: 
  Country: None (occurrence: None)
  Receive Date: 20080507
  Receipt Date: 20080423
  Transmission Date: 20081010
  Serious: Yes (Hospitalization)
  Sender: FDA-Public Use
  Company Number: DE-GENENTECH-260404

PATIENT
  Sex: Male
  Weight: 80 kg

DRUGS (3)
  1. BEVACIZUMAB [Suspect]
     Indication: COLORECTAL CANCER
     Dosage: 400 MG, 1/WEEK
     Dates: start: 20071221
  2. XELODA [Suspect]
     Indication: COLORECTAL CANCER
     Dates: start: 20071221
  3. IRINOTECAN HCL [Suspect]
     Indication: DRUG USE FOR UNKNOWN INDICATION
     Dosage: 160 MG, DAY 8
     Dates: start: 20071221

REACTIONS (3)
  - ASCITES [None]
  - DISEASE PROGRESSION [None]
  - GENERAL PHYSICAL HEALTH DETERIORATION [None]
